FAERS Safety Report 21556170 (Version 5)
Quarter: 2022Q4

REPORT INFORMATION
  Report Type: Spontaneous
  Country: US (occurrence: US)
  Receive Date: 20221104
  Receipt Date: 20221227
  Transmission Date: 20230113
  Serious: Yes (Death, Hospitalization, Other)
  Sender: FDA-Public Use
  Company Number: US-PFIZER INC-202201269779

PATIENT
  Age: 83 Year
  Sex: Male
  Weight: 79.38 kg

DRUGS (8)
  1. VYNDAMAX [Suspect]
     Active Substance: TAFAMIDIS
     Indication: Amyloidosis
     Dosage: 61 MG, 1X/DAY
     Route: 048
     Dates: start: 2021, end: 20221027
  2. VYNDAMAX [Suspect]
     Active Substance: TAFAMIDIS
     Dosage: 61 MG
     Route: 048
  3. CARVEDILOL [Concomitant]
     Active Substance: CARVEDILOL
     Indication: Cardiac disorder
     Dosage: 12.5 MG, 2X/DAY (ONE TABLET BY MOUTH TWICE A DAY)
     Route: 048
  4. AMIODARONE [Concomitant]
     Active Substance: AMIODARONE
     Indication: Cardiac disorder
     Dosage: 200 MG, 2X/DAY
  5. AMIODARONE [Concomitant]
     Active Substance: AMIODARONE
     Dosage: 200 MG, 1X/DAY
  6. ENTRESTO [Concomitant]
     Active Substance: SACUBITRIL\VALSARTAN
     Indication: Cardiac disorder
     Dosage: 1 DF, 2X/DAY
  7. TRELEGY ELLIPTA [Concomitant]
     Active Substance: FLUTICASONE FUROATE\UMECLIDINIUM BROMIDE\VILANTEROL TRIFENATATE
     Indication: Chronic obstructive pulmonary disease
     Dosage: 62.5 UG, 1X/DAY (62.5MCG INH 30P INHALED ONCE A DAY )
  8. VENTOLIN HFA [Concomitant]
     Active Substance: ALBUTEROL SULFATE
     Indication: Wheezing
     Dosage: UNK, AS NEEDED (2 PUFFS AS NEEDED BY MOUTH EVERY 6 HOURS FOR WHEEZING)

REACTIONS (9)
  - Death [Fatal]
  - Fall [Unknown]
  - Pneumonia [Unknown]
  - Renal failure [Unknown]
  - Dyspnoea [Unknown]
  - Dyschezia [Unknown]
  - Heart rate abnormal [Unknown]
  - Hypervolaemia [Unknown]
  - Back pain [Unknown]

NARRATIVE: CASE EVENT DATE: 20221028
